FAERS Safety Report 10960172 (Version 1)
Quarter: 2015Q1

REPORT INFORMATION
  Report Type: Spontaneous
  Country: US (occurrence: None)
  Receive Date: 20150326
  Receipt Date: 20150326
  Transmission Date: 20150721
  Serious: No
  Sender: FDA-Public Use
  Company Number: None

PATIENT
  Age: 52 Year
  Sex: Female

DRUGS (4)
  1. DESOXIMETASONE. [Concomitant]
     Active Substance: DESOXIMETASONE
  2. SIMPONI [Suspect]
     Active Substance: GOLIMUMAB
     Indication: COLITIS ULCERATIVE
     Route: 058
     Dates: start: 201408
  3. MUPIROCIN. [Concomitant]
     Active Substance: MUPIROCIN
  4. CYMBALTA [Concomitant]
     Active Substance: DULOXETINE HYDROCHLORIDE

REACTIONS (7)
  - Visual acuity reduced [None]
  - Infection [None]
  - Joint swelling [None]
  - Peripheral swelling [None]
  - Diarrhoea haemorrhagic [None]
  - Condition aggravated [None]
  - Visual impairment [None]

NARRATIVE: CASE EVENT DATE: 20140901
